FAERS Safety Report 5165258-2 (Version None)
Quarter: 2006Q4

REPORT INFORMATION
  Report Type: 
  Country: None (occurrence: None)
  Receive Date: 20061124
  Receipt Date: 20061114
  Transmission Date: 20070319
  Serious: Yes (Hospitalization)
  Sender: FDA-Public Use
  Company Number: 2006141431

PATIENT
  Age: 64 Year
  Sex: Female
  Weight: 62.1 kg

DRUGS (1)
  1. AROMASIN [Suspect]
     Indication: BREAST CANCER
     Dosage: 25 MG (25 MG, DAILY), ORAL
     Route: 048
     Dates: start: 20041101

REACTIONS (4)
  - CHEST PAIN [None]
  - DIZZINESS [None]
  - HEART RATE IRREGULAR [None]
  - VENTRICULAR EXTRASYSTOLES [None]
